FAERS Safety Report 5174411-3 (Version None)
Quarter: 2006Q4

REPORT INFORMATION
  Report Type: 
  Country: None (occurrence: None)
  Receive Date: 20061214
  Receipt Date: 20060203
  Transmission Date: 20070319
  Serious: Yes (Death)
  Sender: FDA-Public Use
  Company Number: US-SANOFI-SYNTHELABO-A03200600683

PATIENT
  Sex: Female
  Weight: 40.82 kg

DRUGS (7)
  1. LISINOPRIL [Concomitant]
     Route: 048
     Dates: start: 19980101
  2. HYDROCODONE BITARTRATE [Concomitant]
     Route: 048
     Dates: start: 19980101
  3. LOVASTATIN [Concomitant]
     Route: 048
     Dates: start: 19980101
  4. ATENOLOL [Concomitant]
     Route: 048
     Dates: start: 19980101
  5. PEPCID [Concomitant]
     Dosage: UNK
     Route: 048
     Dates: start: 19980101
  6. LASIX [Concomitant]
     Route: 048
     Dates: start: 19980101
  7. PLAVIX [Suspect]
     Indication: CEREBROVASCULAR ACCIDENT
     Route: 048
     Dates: start: 20010201

REACTIONS (1)
  - DEATH [None]
